FAERS Safety Report 8569573 (Version 4)
Quarter: 2013Q1

REPORT INFORMATION
  Report Type: Report from Study
  Country: US (occurrence: US)
  Receive Date: 20120518
  Receipt Date: 20130103
  Transmission Date: 20140127
  Serious: Yes (Death, Hospitalization, Other)
  Sender: FDA-Public Use
  Company Number: US-ACTELION-A-NJ2010-37830

PATIENT
  Age: 87 Year
  Sex: Male

DRUGS (3)
  1. TRACLEER [Suspect]
     Indication: PULMONARY ARTERIAL HYPERTENSION
     Dosage: 125 MG, BID
     Route: 048
     Dates: start: 2006, end: 20121218
  2. TRACLEER [Suspect]
     Dosage: UNK
     Route: 048
     Dates: start: 200302
  3. VIAGRA [Concomitant]

REACTIONS (4)
  - Death [Fatal]
  - Chronic obstructive pulmonary disease [Recovering/Resolving]
  - Prostate cancer metastatic [Recovering/Resolving]
  - Local swelling [Unknown]
